FAERS Safety Report 15658836 (Version 6)
Quarter: 2020Q4

REPORT INFORMATION
  Report Type: Spontaneous
  Country: US (occurrence: US)
  Receive Date: 20181126
  Receipt Date: 20201015
  Transmission Date: 20210113
  Serious: Yes (Other)
  Sender: FDA-Public Use
  Company Number: US-AMGEN-USASP2018167553

PATIENT
  Sex: Female

DRUGS (4)
  1. OTEZLA [Suspect]
     Active Substance: APREMILAST
     Indication: ARTHRITIS
     Dosage: UNK
     Route: 065
  2. HUMIRA [Suspect]
     Active Substance: ADALIMUMAB
     Indication: ARTHRITIS
     Dosage: UNK
     Route: 058
  3. ENBREL [Suspect]
     Active Substance: ETANERCEPT
     Indication: ARTHRITIS
     Dosage: UNK
     Route: 065
  4. METHOTREXATE. [Concomitant]
     Active Substance: METHOTREXATE
     Indication: ARTHRITIS
     Dosage: UNK
     Route: 065

REACTIONS (5)
  - Drug intolerance [Unknown]
  - Adverse drug reaction [Unknown]
  - Drug ineffective [Unknown]
  - Suicidal ideation [Not Recovered/Not Resolved]
  - Illness [Not Recovered/Not Resolved]
